FAERS Safety Report 23833741 (Version 5)
Quarter: 2024Q2

REPORT INFORMATION
  Report Type: Report from Study
  Country: US (occurrence: US)
  Receive Date: 20240509
  Receipt Date: 20240602
  Transmission Date: 20240716
  Serious: Yes (Hospitalization, Other)
  Sender: FDA-Public Use
  Company Number: US-ABBVIE-5747539

PATIENT
  Age: 71 Year
  Sex: Male

DRUGS (4)
  1. DUOPA [Suspect]
     Active Substance: CARBIDOPA\LEVODOPA
     Indication: Parkinson^s disease
     Route: 050
     Dates: start: 20170921
  2. DUOPA [Suspect]
     Active Substance: CARBIDOPA\LEVODOPA
     Route: 050
  3. DUOPA [Suspect]
     Active Substance: CARBIDOPA\LEVODOPA
     Route: 050
  4. DUOPA [Suspect]
     Active Substance: CARBIDOPA\LEVODOPA
     Route: 050

REACTIONS (13)
  - Embedded device [Recovered/Resolved]
  - Stoma site oedema [Unknown]
  - Stoma site irritation [Recovered/Resolved]
  - Stoma site reaction [Not Recovered/Not Resolved]
  - Device leakage [Not Recovered/Not Resolved]
  - Stoma site inflammation [Unknown]
  - Stoma site infection [Unknown]
  - Embedded device [Recovering/Resolving]
  - Stoma site discharge [Unknown]
  - Exploratory operation [Unknown]
  - Stoma site reaction [Unknown]
  - Blood pressure abnormal [Recovering/Resolving]
  - Pulse abnormal [Recovering/Resolving]

NARRATIVE: CASE EVENT DATE: 20240401
